FAERS Safety Report 13647048 (Version 1)
Quarter: 2017Q2

REPORT INFORMATION
  Report Type: Spontaneous
  Country: FR (occurrence: FR)
  Receive Date: 20170613
  Receipt Date: 20170613
  Transmission Date: 20170830
  Serious: Yes (Hospitalization)
  Sender: FDA-Public Use
  Company Number: FR-ROCHE-1945765

PATIENT
  Age: 53 Year
  Sex: Male

DRUGS (14)
  1. ZINNAT [Concomitant]
     Active Substance: CEFUROXIME AXETIL
  2. OMNIPAQUE [Suspect]
     Active Substance: IOHEXOL
     Indication: MENINGORRHAGIA
     Route: 042
     Dates: start: 20150518, end: 20150523
  3. ULTRAVIST [Concomitant]
     Active Substance: IOPROMIDE
  4. XENETIX [Suspect]
     Active Substance: IOBITRIDOL
     Indication: PRODUCT USED FOR UNKNOWN INDICATION
     Route: 042
     Dates: start: 20150521, end: 20150526
  5. AMOXICILLIN. [Suspect]
     Active Substance: AMOXICILLIN
     Indication: MENINGITIS
     Route: 042
     Dates: start: 20150518, end: 20150520
  6. ROCEPHINE [Suspect]
     Active Substance: CEFTRIAXONE SODIUM
     Indication: MENINGITIS
     Route: 042
     Dates: start: 20150518, end: 20150520
  7. IOHEXOL [Concomitant]
     Active Substance: IOHEXOL
  8. CEFRADINE [Concomitant]
     Active Substance: CEPHRADINE
  9. CEFAZOLINE [Concomitant]
     Active Substance: CEFAZOLIN SODIUM
  10. NIMOTOP [Concomitant]
     Active Substance: NIMODIPINE
  11. CEFOTAXIME [Concomitant]
     Active Substance: CEFOTAXIME SODIUM
  12. VISIPAQUE [Concomitant]
     Active Substance: IODIXANOL
  13. OPTIJECT [Concomitant]
     Active Substance: IOVERSOL
  14. INEXIUM [Concomitant]
     Active Substance: ESOMEPRAZOLE

REACTIONS (2)
  - Condition aggravated [Recovered/Resolved]
  - Drug reaction with eosinophilia and systemic symptoms [Recovered/Resolved]

NARRATIVE: CASE EVENT DATE: 20150520
